FAERS Safety Report 6721594-7 (Version None)
Quarter: 2010Q2

REPORT INFORMATION
  Report Type: 
  Country: None (occurrence: None)
  Receive Date: 20100512
  Receipt Date: 20100428
  Transmission Date: 20101027
  Serious: Yes (Other)
  Sender: FDA-Public Use
  Company Number: PHHY2010US27845

PATIENT
  Age: 60 Year
  Sex: Female

DRUGS (1)
  1. TEKTURNA HCT [Suspect]
     Dosage: UNK, QD, (150/25 MG) ,

REACTIONS (1)
  - VENTRICULAR EXTRASYSTOLES [None]
